FAERS Safety Report 7156232-5 (Version None)
Quarter: 2010Q4

REPORT INFORMATION
  Report Type: 
  Country: None (occurrence: None)
  Receive Date: 20101214
  Receipt Date: 20101206
  Transmission Date: 20110411
  Serious: Yes (Other)
  Sender: FDA-Public Use
  Company Number: CH-JNJFOC-20101104097

PATIENT
  Sex: Female
  Weight: 2.9 kg

DRUGS (7)
  1. CONCERTA [Suspect]
     Indication: DRUG EXPOSURE DURING PREGNANCY
     Dosage: PER DAY
     Route: 064
  2. CONCERTA [Suspect]
     Dosage: PER DAY
     Route: 064
  3. TRAMAL RETARD [Suspect]
     Indication: DRUG EXPOSURE DURING PREGNANCY
     Dosage: 100 MG X 3 PER DAY
     Route: 064
  4. RITALIN [Suspect]
     Indication: DRUG EXPOSURE DURING PREGNANCY
     Dosage: PER DAY
     Route: 064
  5. KEPPRA [Suspect]
     Indication: DRUG EXPOSURE DURING PREGNANCY
     Dosage: 2 PER DAY
     Route: 064
  6. KEPPRA [Suspect]
     Dosage: PER DAY
     Route: 064
  7. MORPHINE [Suspect]
     Indication: DRUG EXPOSURE DURING PREGNANCY
     Dosage: 40-20-20 MG DAILY AND 40 MG IN RESERVE TAKEN UNTIL DELIVERY
     Route: 064

REACTIONS (3)
  - DRUG EXPOSURE DURING PREGNANCY [None]
  - DRUG WITHDRAWAL SYNDROME NEONATAL [None]
  - MATERNAL DRUGS AFFECTING FOETUS [None]
